FAERS Safety Report 15520082 (Version 1)
Quarter: 2018Q4

REPORT INFORMATION
  Report Type: Spontaneous
  Country: IT (occurrence: IT)
  Receive Date: 20181017
  Receipt Date: 20181017
  Transmission Date: 20190205
  Serious: Yes (Other)
  Sender: FDA-Public Use
  Company Number: IT-FRESENIUS KABI-FK201810754

PATIENT
  Age: 36 Week
  Sex: Male

DRUGS (2)
  1. BUTYLSCOPOLAMINE [Concomitant]
     Active Substance: BUTYLSCOPOLAMINE
     Indication: DRUG THERAPY
     Route: 064
  2. MORPHINE (MANUFACTURER UNKNOWN) [Suspect]
     Active Substance: MORPHINE
     Indication: PAIN MANAGEMENT
     Dosage: 0,1 MG/KG
     Route: 064

REACTIONS (2)
  - Tachycardia foetal [Recovered/Resolved]
  - Foetal exposure during pregnancy [Recovered/Resolved]
